FAERS Safety Report 6573947-8 (Version None)
Quarter: 2010Q1

REPORT INFORMATION
  Report Type: 
  Country: None (occurrence: None)
  Receive Date: 20100208
  Receipt Date: 20100202
  Transmission Date: 20100710
  Serious: Yes (Other)
  Sender: FDA-Public Use
  Company Number: FR-PFIZER INC-2010013328

PATIENT
  Age: 41 Year
  Sex: Female

DRUGS (1)
  1. CHAMPIX [Suspect]
     Indication: SMOKING CESSATION THERAPY
     Dosage: UNK
     Dates: start: 20091201

REACTIONS (4)
  - DEPRESSION [None]
  - DYSPHONIA [None]
  - SUICIDAL IDEATION [None]
  - TENDON DISORDER [None]
